FAERS Safety Report 5977901-6 (Version None)
Quarter: 2008Q4

REPORT INFORMATION
  Report Type: 
  Country: None (occurrence: None)
  Receive Date: 20081203
  Receipt Date: 20081125
  Transmission Date: 20090506
  Serious: Yes (Hospitalization)
  Sender: FDA-Public Use
  Company Number: US-ABBOTT-08P-163-0489894-00

PATIENT
  Sex: Female

DRUGS (3)
  1. HUMIRA [Suspect]
     Indication: CROHN'S DISEASE
     Dates: start: 20081027
  2. PANTOPRAZOLE SODIUM [Concomitant]
     Indication: GASTRIC DISORDER
  3. MESALAMINE [Concomitant]
     Indication: DRUG USE FOR UNKNOWN INDICATION

REACTIONS (6)
  - ASTHENIA [None]
  - BRONCHITIS [None]
  - COUGH [None]
  - NASOPHARYNGITIS [None]
  - PYREXIA [None]
  - TREMOR [None]
